FAERS Safety Report 8144636-3 (Version None)
Quarter: 2012Q1

REPORT INFORMATION
  Report Type: 
  Country: None (occurrence: None)
  Receive Date: 20120217
  Receipt Date: 20120202
  Transmission Date: 20120608
  Serious: Yes (Hospitalization)
  Sender: FDA-Public Use
  Company Number: US-ROCHE-1040765

PATIENT
  Age: 72 Year
  Sex: Male
  Weight: 81.72 kg

DRUGS (3)
  1. NEOSPORIN [Concomitant]
  2. AVASTIN [Suspect]
     Indication: CHRONIC LYMPHOCYTIC LEUKAEMIA
     Dates: start: 20110809, end: 20111213
  3. PENICILLIN [Concomitant]

REACTIONS (5)
  - CHILLS [None]
  - VOMITING [None]
  - FEELING COLD [None]
  - ASTHENIA [None]
  - NAUSEA [None]
